FAERS Safety Report 15956825 (Version 1)
Quarter: 2019Q1

REPORT INFORMATION
  Report Type: Spontaneous
  Country: GB (occurrence: GB)
  Receive Date: 20190213
  Receipt Date: 20190213
  Transmission Date: 20190417
  Serious: Yes (Death, Other)
  Sender: FDA-Public Use
  Company Number: GB-MYLANLABS-2019M1012017

PATIENT
  Age: 37 Year
  Sex: Male

DRUGS (10)
  1. PHENYTOIN. [Suspect]
     Active Substance: PHENYTOIN
     Indication: PRODUCT USED FOR UNKNOWN INDICATION
     Dosage: 200 MILLIGRAM, QD
     Route: 065
  2. PHENYTOIN. [Suspect]
     Active Substance: PHENYTOIN
     Dosage: 300 MILLIGRAM, QD, (300 MG, QD, NOCTE)
  3. BACLOFEN. [Suspect]
     Active Substance: BACLOFEN
     Dosage: 60 MILLIGRAM, QD, (60 MG, QD)
  4. CHLORPROMAZINE. [Suspect]
     Active Substance: CHLORPROMAZINE
     Indication: PRODUCT USED FOR UNKNOWN INDICATION
     Dosage: 20 MILLIGRAM, BID, (20 MG, BID
     Route: 065
  5. BACLOFEN. [Suspect]
     Active Substance: BACLOFEN
     Indication: PRODUCT USED FOR UNKNOWN INDICATION
     Dosage: 20 MILLIGRAM, Q6H, (20 MG, Q6H)
  6. BACLOFEN. [Suspect]
     Active Substance: BACLOFEN
     Dosage: 20 MILLIGRAM, Q8H, (20 MG, TID)
     Route: 065
     Dates: start: 1975
  7. ORPHENADRINE [Suspect]
     Active Substance: ORPHENADRINE
     Indication: PRODUCT USED FOR UNKNOWN INDICATION
     Dosage: 50 MILLIGRAM, Q8H, (50 MG, TID)
     Route: 065
  8. BACLOFEN. [Suspect]
     Active Substance: BACLOFEN
     Dosage: 20 MILLIGRAM, Q6H, (20 MG, Q6H)
  9. TRIMETHOPRIM. [Suspect]
     Active Substance: TRIMETHOPRIM
     Indication: PRODUCT USED FOR UNKNOWN INDICATION
     Dosage: 100 MILLIGRAM, QD, (100 MG, QD, NOCTE)
     Route: 065
  10. TEMAZEPAM. [Suspect]
     Active Substance: TEMAZEPAM
     Indication: PRODUCT USED FOR UNKNOWN INDICATION
     Dosage: 20 MILLIGRAM, QD
     Route: 065

REACTIONS (16)
  - Cerebral atrophy [Unknown]
  - Hallucinations, mixed [Recovered/Resolved]
  - Hallucination, olfactory [Unknown]
  - Movement disorder [Unknown]
  - Depersonalisation/derealisation disorder [Unknown]
  - Echopraxia [Unknown]
  - Echolalia [Unknown]
  - Confusional state [Unknown]
  - Hallucination [Recovered/Resolved]
  - Sepsis [Unknown]
  - Mental disorder [Unknown]
  - Spinal artery thrombosis [Unknown]
  - Quadriplegia [Unknown]
  - Generalised tonic-clonic seizure [Fatal]
  - Urinary tract infection [Unknown]
  - Encephalopathy [Recovered/Resolved]

NARRATIVE: CASE EVENT DATE: 1683
